FAERS Safety Report 6187209-4 (Version None)
Quarter: 2009Q2

REPORT INFORMATION
  Report Type: 
  Country: None (occurrence: None)
  Receive Date: 20090512
  Receipt Date: 20090428
  Transmission Date: 20091009
  Serious: Yes (Other)
  Sender: FDA-Public Use
  Company Number: PHHY2009PT16102

PATIENT
  Age: 19 Year
  Sex: Male

DRUGS (1)
  1. LEPONEX [Suspect]
     Dosage: UNK

REACTIONS (6)
  - ARTHRALGIA [None]
  - JUVENILE ARTHRITIS [None]
  - PYREXIA [None]
  - RASH [None]
  - SKIN LESION [None]
  - STREPTOCOCCAL INFECTION [None]
